FAERS Safety Report 7606679-5 (Version None)
Quarter: 2011Q3

REPORT INFORMATION
  Report Type: 
  Country: None (occurrence: None)
  Receive Date: 20110713
  Receipt Date: 20110706
  Transmission Date: 20111222
  Serious: Yes (Other)
  Sender: FDA-Public Use
  Company Number: CA-ROCHE-775669

PATIENT
  Sex: Male

DRUGS (9)
  1. BEVACIZUMAB [Suspect]
     Indication: GLIOBLASTOMA
     Dosage: FORM INFUSION
     Route: 042
     Dates: start: 20100928
  2. BEVACIZUMAB [Suspect]
     Route: 042
     Dates: start: 20110504
  3. PANTOPRAZOLE SODIUM [Concomitant]
  4. DEXAMETHASONE [Concomitant]
  5. VALCYTE [Concomitant]
  6. KEPPRA [Concomitant]
  7. BEVACIZUMAB [Suspect]
     Route: 042
     Dates: start: 20110201, end: 20110503
  8. BEVACIZUMAB [Suspect]
     Route: 042
     Dates: start: 20110526
  9. ASCORBIC ACID [Concomitant]

REACTIONS (10)
  - INFLUENZA LIKE ILLNESS [None]
  - EYE INFECTION [None]
  - NAUSEA [None]
  - CONFUSIONAL STATE [None]
  - VOMITING [None]
  - HEMIPARESIS [None]
  - HEADACHE [None]
  - BRONCHITIS [None]
  - SPEECH DISORDER [None]
  - FATIGUE [None]
